FAERS Safety Report 21098101 (Version 2)
Quarter: 2022Q3

REPORT INFORMATION
  Report Type: Spontaneous
  Country: US (occurrence: US)
  Receive Date: 20220719
  Receipt Date: 20220923
  Transmission Date: 20221026
  Serious: No
  Sender: FDA-Public Use
  Company Number: US-BRISTOL-MYERS SQUIBB COMPANY-2022-068023

PATIENT
  Age: 79 Year
  Sex: Female

DRUGS (2)
  1. REVLIMID [Suspect]
     Active Substance: LENALIDOMIDE
     Indication: Plasma cell myeloma
     Dosage: FREQUENCY: DAILY FOR 28 DAYS WITH WATER WITH OR WITHOUT FOOD.
     Route: 048
  2. REVLIMID [Suspect]
     Active Substance: LENALIDOMIDE
     Dosage: 1 DF : 1 CAPSULE?FREQ : TAKE 1 CAPSULE BY MOUTH DAILY FOR 28 DAYS, TAKE WITH WATER,
     Route: 048

REACTIONS (3)
  - Fatigue [Unknown]
  - Insomnia [Unknown]
  - Back pain [Unknown]
